FAERS Safety Report 19463256 (Version 1)
Quarter: 2021Q2

REPORT INFORMATION
  Report Type: Spontaneous
  Country: US (occurrence: US)
  Receive Date: 20210625
  Receipt Date: 20210625
  Transmission Date: 20210717
  Serious: No
  Sender: FDA-Public Use
  Company Number: NVSC2021US138464

PATIENT

DRUGS (1)
  1. LUTATHERA [Suspect]
     Active Substance: LUTETIUM OXODOTREOTIDE LU-177
     Indication: PRODUCT USED FOR UNKNOWN INDICATION
     Dosage: 1 DF (130 MBQ(MECABEQUERAL), MCI)
     Route: 042
     Dates: start: 20210615, end: 20210615

REACTIONS (2)
  - Infusion site extravasation [Unknown]
  - Incorrect dose administered [Unknown]
